FAERS Safety Report 13185367 (Version 3)
Quarter: 2017Q2

REPORT INFORMATION
  Report Type: Spontaneous
  Country: US (occurrence: US)
  Receive Date: 20170203
  Receipt Date: 20170518
  Transmission Date: 20170830
  Serious: Yes (Other)
  Sender: FDA-Public Use
  Company Number: US-009507513-1702USA000433

PATIENT
  Age: 44 Year
  Sex: Female
  Weight: 70.3 kg

DRUGS (2)
  1. XANAX [Suspect]
     Active Substance: ALPRAZOLAM
  2. NEXPLANON [Suspect]
     Active Substance: ETONOGESTREL
     Indication: CONTRACEPTION
     Dosage: 1 ROD EVERY 3 YEARS
     Route: 059
     Dates: start: 20161214, end: 20170131

REACTIONS (3)
  - Panic attack [Recovering/Resolving]
  - Metrorrhagia [Unknown]
  - Irritability [Unknown]

NARRATIVE: CASE EVENT DATE: 20170124
